FAERS Safety Report 18793821 (Version 2)
Quarter: 2021Q3

REPORT INFORMATION
  Report Type: Report from Study
  Country: US (occurrence: US)
  Receive Date: 20210127
  Receipt Date: 20210804
  Transmission Date: 20211014
  Serious: No
  Sender: FDA-Public Use
  Company Number: US-SA-2021SA025204

PATIENT
  Sex: Male

DRUGS (1)
  1. FABRAZYME [Suspect]
     Active Substance: AGALSIDASE BETA
     Indication: FABRY^S DISEASE
     Dosage: 105 MG, QOW
     Route: 042
     Dates: start: 20190815

REACTIONS (4)
  - Inappropriate schedule of product administration [Unknown]
  - Taste disorder [Recovered/Resolved]
  - Pain [Recovering/Resolving]
  - Vomiting [Recovered/Resolved]
